FAERS Safety Report 9916513 (Version 1)
Quarter: 2014Q1

REPORT INFORMATION
  Report Type: Spontaneous
  Country: JP (occurrence: None)
  Receive Date: 20140219
  Receipt Date: 20140219
  Transmission Date: 20141002
  Serious: Yes (Other)
  Sender: FDA-Public Use
  Company Number: FK201400514

PATIENT
  Age: 28 Year
  Sex: Male

DRUGS (3)
  1. BLEOMYCIN [Suspect]
     Indication: TESTICULAR CANCER METASTATIC
     Dates: start: 200906
  2. ETOPOSIDE [Suspect]
     Indication: TESTICULAR CANCER METASTATIC
     Dates: start: 200906
  3. CISPLATIN (CISPLATIN) (CISPLATIN) [Suspect]
     Indication: TESTICULAR CANCER METASTATIC
     Dates: start: 200906

REACTIONS (8)
  - Pneumomediastinum [None]
  - Bone marrow failure [None]
  - Nausea [None]
  - Vomiting [None]
  - Febrile neutropenia [None]
  - Feeling abnormal [None]
  - Subcutaneous emphysema [None]
  - Traumatic lung injury [None]
